FAERS Safety Report 9305538 (Version 1)
Quarter: 2013Q2

REPORT INFORMATION
  Report Type: Spontaneous
  Country: AU (occurrence: AU)
  Receive Date: 20130523
  Receipt Date: 20130523
  Transmission Date: 20140414
  Serious: Yes (Other)
  Sender: FDA-Public Use
  Company Number: AU-ROCHE-1227976

PATIENT
  Sex: Female

DRUGS (17)
  1. XELODA [Suspect]
     Indication: BREAST CANCER
     Route: 065
     Dates: start: 2006, end: 201209
  2. HERCEPTIN [Suspect]
     Indication: BREAST CANCER
     Route: 065
     Dates: start: 2006, end: 201209
  3. NAVELBINE [Concomitant]
     Indication: BREAST CANCER
     Route: 065
     Dates: start: 2006, end: 201209
  4. CARBOPLATIN [Concomitant]
     Indication: BREAST CANCER
     Route: 065
     Dates: start: 2006
  5. GEMCITABINE [Concomitant]
     Indication: BREAST CANCER
     Route: 065
     Dates: start: 2006, end: 201209
  6. ABRAXANE [Concomitant]
     Indication: BREAST CANCER
     Route: 065
     Dates: start: 2006, end: 201209
  7. CAELYX [Concomitant]
     Indication: BREAST CANCER
     Route: 065
     Dates: start: 2006, end: 201209
  8. FLUOROURACIL [Concomitant]
     Indication: BREAST CANCER
     Route: 065
     Dates: start: 2006, end: 201209
  9. DOCETAXEL [Concomitant]
     Indication: BREAST CANCER
     Route: 065
     Dates: start: 2006, end: 201209
  10. ERIBULIN [Concomitant]
     Indication: BREAST CANCER
     Route: 065
     Dates: start: 2006, end: 201209
  11. BONDRONAT [Concomitant]
     Route: 065
     Dates: start: 2006, end: 201209
  12. BONDRONAT [Concomitant]
     Route: 065
     Dates: start: 201212
  13. TYKERB [Concomitant]
     Route: 065
     Dates: start: 201301, end: 201304
  14. FEMARA [Concomitant]
     Route: 065
     Dates: start: 201212, end: 201304
  15. EPIRUBICIN [Concomitant]
     Indication: BREAST CANCER
     Route: 065
     Dates: start: 2006, end: 201209
  16. CYCLOPHOSPHAMIDE [Concomitant]
     Indication: BREAST CANCER
     Route: 065
     Dates: start: 2006, end: 201209
  17. METHOTREXATE [Concomitant]
     Indication: BREAST CANCER
     Route: 065
     Dates: start: 2006, end: 201209

REACTIONS (1)
  - Disease progression [Unknown]
